FAERS Safety Report 6293029-2 (Version None)
Quarter: 2009Q3

REPORT INFORMATION
  Report Type: 
  Country: None (occurrence: None)
  Receive Date: 20090729
  Receipt Date: 20090720
  Transmission Date: 20100115
  Serious: Yes (Hospitalization)
  Sender: FDA-Public Use
  Company Number: 2009-201124-NL

PATIENT
  Age: 89 Year
  Sex: Female

DRUGS (9)
  1. DANAPAROID SODIUM [Suspect]
     Dosage: ANTI _XA, INTRAVENOUS (NOS)
     Route: 042
     Dates: start: 20090109, end: 20090118
  2. WARFARIN SODIUM [Suspect]
     Dosage: DF, ORAL
     Route: 048
     Dates: start: 20090113, end: 20090117
  3. ACETYLSALICYLATE LYSINE [Suspect]
     Dosage: DF, ORAL
     Route: 048
     Dates: end: 20090116
  4. ACEBUTOLOL [Concomitant]
  5. DISOPYRAMIDE [Concomitant]
  6. FOSINOPRIL SODIUM [Concomitant]
  7. LORAZEPAM [Concomitant]
  8. GINKGO EILOBA EXTRACT [Concomitant]
  9. NITRAZEPAM [Concomitant]

REACTIONS (2)
  - INTERNATIONAL NORMALISED RATIO DECREASED [None]
  - RETROPERITONEAL HAEMATOMA [None]
